FAERS Safety Report 7804466-6 (Version None)
Quarter: 2011Q4

REPORT INFORMATION
  Report Type: 
  Country: None (occurrence: None)
  Receive Date: 20111010
  Receipt Date: 20110928
  Transmission Date: 20120403
  Serious: Yes (Life-Threatening, Hospitalization)
  Sender: FDA-Public Use
  Company Number: IL-ROCHE-800105

PATIENT
  Age: 27 Year
  Sex: Female
  Weight: 45.9 kg

DRUGS (1)
  1. VEMURAFENIB [Suspect]
     Indication: METASTATIC MALIGNANT MELANOMA
     Dosage: FORM : PILL, TEMPORARILY DISCONTINUED ON 28/AUG/2011
     Route: 048
     Dates: start: 20110802, end: 20110907

REACTIONS (5)
  - ANAEMIA [None]
  - NEUTROPENIA [None]
  - FEBRILE NEUTROPENIA [None]
  - DYSURIA [None]
  - RASH [None]
